FAERS Safety Report 26106102 (Version 1)
Quarter: 2025Q4

REPORT INFORMATION
  Report Type: Spontaneous
  Country: EU (occurrence: EU)
  Receive Date: 20251201
  Receipt Date: 20251201
  Transmission Date: 20260118
  Serious: Yes (Life-Threatening)
  Sender: AUROBINDO
  Company Number: EU-CELLTRION HEALTHCARE HUNGARY KFT- 2020DE030881

PATIENT

DRUGS (15)
  1. ACYCLOVIR [Suspect]
     Active Substance: ACYCLOVIR
     Indication: Product used for unknown indication
     Dosage: AT EACH CYCLE
     Route: 065
  2. PREDNISOLONE [Suspect]
     Active Substance: PREDNISOLONE
     Indication: Central nervous system lymphoma
     Dosage: 3 MG, EVERY 3 WEEKS (CYCLE 4+6) VIA INTRACEREBROVENTICULAR ROUTE (ICV)
     Route: 065
  3. PREDNISOLONE [Suspect]
     Active Substance: PREDNISOLONE
     Dosage: 3 MG, EVERY 2 WEEKS (CYCLE 5) VIA INTRACEREBROVENTICULAR ROUTE (ICV)
     Route: 065
  4. GRANULOCYTE COLONY-STIMULATING FACTOR NOS [Suspect]
     Active Substance: GRANULOCYTE COLONY-STIMULATING FACTOR NOS
     Indication: Prophylaxis
     Dosage: AT EACH CYCLE
     Route: 065
  5. IFOSFAMIDE [Suspect]
     Active Substance: IFOSFAMIDE
     Indication: Central nervous system lymphoma
     Dosage: 800 MG/M2, EVERY 2 WEEKS (CYCLE 1-3)
  6. IFOSFAMIDE [Suspect]
     Active Substance: IFOSFAMIDE
     Dosage: 800 MG/M2, EVERY 2 WEEKS (CYCLE 5)
  7. METHOTREXATE [Suspect]
     Active Substance: METHOTREXATE
     Indication: Central nervous system lymphoma
     Dosage: 4000 MG/M2, EVERY 2 WEEKS (CYCLE 1-3)
  8. METHOTREXATE [Suspect]
     Active Substance: METHOTREXATE
     Dosage: 4000 MG/M2, EVERY 2 WEEKS (CYCLE 5)
  9. METHOTREXATE [Suspect]
     Active Substance: METHOTREXATE
     Dosage: 2.5 MG, EVERY 3 WEEKS (CYCLE 4+6)
  10. METHOTREXATE [Suspect]
     Active Substance: METHOTREXATE
     Dosage: 2.5 MG, EVERY 2 WEEKS (CYCLE 5)
  11. RITUXIMAB [Suspect]
     Active Substance: RITUXIMAB
     Indication: Central nervous system lymphoma
     Dosage: 375 MG/M2, EVERY 2 WEEKS (CYCLE 1-3)
  12. SULFAMETHOXAZOLE\TRIMETHOPRIM [Suspect]
     Active Substance: SULFAMETHOXAZOLE\TRIMETHOPRIM
     Indication: Product used for unknown indication
     Dosage: AT EACH CYCLE
     Route: 065
  13. CYTARABINE [Suspect]
     Active Substance: CYTARABINE
     Indication: Central nervous system lymphoma
     Dosage: 10 MG, EVERY 2 WEEKS (CYCLE 5)
  14. CYTARABINE [Suspect]
     Active Substance: CYTARABINE
     Dosage: 10 MG, EVERY 3 WEEKS (CYCLE 4+6)
  15. CYTARABINE [Suspect]
     Active Substance: CYTARABINE
     Dosage: 3000 MG/M2, EVERY 3 WEEKS (CYCLE 4+6)

REACTIONS (1)
  - Blood potassium decreased [Unknown]
